FAERS Safety Report 10232875 (Version 1)
Quarter: 2014Q2

REPORT INFORMATION
  Report Type: Spontaneous
  Country: GB (occurrence: GB)
  Receive Date: 20140612
  Receipt Date: 20140612
  Transmission Date: 20141212
  Serious: Yes (Other)
  Sender: FDA-Public Use
  Company Number: GB-SA-2014SA072574

PATIENT
  Age: 42 Year
  Sex: Male
  Weight: 85 kg

DRUGS (7)
  1. LEFLUNOMIDE [Suspect]
     Indication: PSORIATIC ARTHROPATHY
     Route: 048
     Dates: start: 20130801, end: 20140301
  2. CETIRIZINE HYDROCHLORIDE [Concomitant]
  3. ETODOLAC [Concomitant]
  4. MIRTAZAPINE [Concomitant]
  5. OMEPRAZOLE [Concomitant]
  6. SYMBICORT [Concomitant]
  7. VITAMIN D [Concomitant]

REACTIONS (3)
  - Sensorimotor disorder [Recovered/Resolved with Sequelae]
  - Sensory disturbance [Not Recovered/Not Resolved]
  - Peripheral motor neuropathy [Recovered/Resolved with Sequelae]
